FAERS Safety Report 20628834 (Version 1)
Quarter: 2022Q1

REPORT INFORMATION
  Report Type: Report from Study
  Country: US (occurrence: US)
  Receive Date: 20220323
  Receipt Date: 20220323
  Transmission Date: 20220423
  Serious: Yes (Hospitalization)
  Sender: FDA-Public Use
  Company Number: US-TEVA-2022-US-2018583

PATIENT
  Age: 75 Year
  Sex: Female
  Weight: 73 kg

DRUGS (10)
  1. OXALIPLATIN [Suspect]
     Active Substance: OXALIPLATIN
     Indication: Pancreatic carcinoma metastatic
     Dosage: 159.8 MILLIGRAM DAILY; DAY 1 AND 15 OF EVERY 28-DAYS CYCLE
     Route: 042
     Dates: start: 20220209, end: 20220209
  2. LEUCOVORIN [Suspect]
     Active Substance: LEUCOVORIN
     Indication: Pancreatic carcinoma metastatic
     Dosage: 752 MILLIGRAM DAILY; DAY 1 AND 15 OF EVERY 28-DAYS CYCLE
     Route: 042
     Dates: start: 20220209, end: 20220209
  3. IRINOTECAN [Suspect]
     Active Substance: IRINOTECAN
     Indication: Pancreatic carcinoma metastatic
     Dosage: 282 MILLIGRAM DAILY; DAY 1 AND 15 OF EVERY 28-DAYS CYCLE
     Route: 042
     Dates: start: 20220209, end: 20220209
  4. FLUOROURACIL [Suspect]
     Active Substance: FLUOROURACIL
     Indication: Pancreatic carcinoma metastatic
     Dosage: 4512 MILLIGRAM DAILY; DAYS 1, 3, 15 AND 17 OF EVERY 28-DAYS CYCLE
     Route: 042
     Dates: start: 20220209, end: 20220209
  5. BUDIGALIMAB [Suspect]
     Active Substance: BUDIGALIMAB
     Indication: Pancreatic carcinoma metastatic
     Dosage: 400 MILLIGRAM DAILY; DAY 3 OF EVERY 28-DAYS CYCLE
     Route: 042
     Dates: start: 20220211, end: 20220211
  6. GILORALIMAB [Suspect]
     Active Substance: GILORALIMAB
     Indication: Pancreatic carcinoma metastatic
     Dosage: 24.48 MILLIGRAM DAILY; DAY 3 OF EVERY 28-DAYS CYCLE
     Route: 042
     Dates: start: 20220211, end: 20220211
  7. POTASSIUM CHLORIDE [Concomitant]
     Active Substance: POTASSIUM CHLORIDE
     Indication: Hypokalaemia
     Dosage: 20 MILLIEQUIVALENTS DAILY;
     Route: 048
     Dates: start: 20220207
  8. ACETAMINOPHEN [Concomitant]
     Active Substance: ACETAMINOPHEN
     Indication: Abdominal pain
     Dosage: 1000 MILLIGRAM DAILY; 1 IN 1 AS REQUIRED
     Route: 048
     Dates: start: 20210801
  9. ONDANSETRON [Concomitant]
     Active Substance: ONDANSETRON
     Indication: Nausea
     Dosage: 1 IN 1 AS REQUIRED
     Route: 048
     Dates: start: 20211227
  10. PROCHLORPERAZINE [Concomitant]
     Active Substance: PROCHLORPERAZINE
     Indication: Nausea
     Dosage: 10 MILLIGRAM DAILY; 1 IN 1 AS REQUIRED
     Route: 048
     Dates: start: 20211227

REACTIONS (5)
  - Back pain [Not Recovered/Not Resolved]
  - Bacteraemia [Not Recovered/Not Resolved]
  - Fatigue [Recovered/Resolved]
  - Decreased appetite [Recovered/Resolved]
  - Malaise [Recovered/Resolved]

NARRATIVE: CASE EVENT DATE: 20220210
